FAERS Safety Report 22696439 (Version 3)
Quarter: 2023Q4

REPORT INFORMATION
  Report Type: Spontaneous
  Country: US (occurrence: US)
  Receive Date: 20230712
  Receipt Date: 20231117
  Transmission Date: 20240110
  Serious: Yes (Other)
  Sender: FDA-Public Use
  Company Number: US-BEH-2023160819

PATIENT
  Age: 80 Year
  Sex: Male

DRUGS (8)
  1. IDELVION [Suspect]
     Active Substance: COAGULATION FACTOR IX RECOMBINANT HUMAN
     Indication: Factor VIII deficiency
     Dosage: 3500 INTERNATIONAL UNIT, EVERY 5 DAYS
     Route: 042
     Dates: start: 202211
  2. IDELVION [Suspect]
     Active Substance: COAGULATION FACTOR IX RECOMBINANT HUMAN
     Indication: Factor VIII deficiency
     Dosage: 3500 INTERNATIONAL UNIT, EVERY 5 DAYS
     Route: 042
     Dates: start: 202211
  3. IDELVION [Suspect]
     Active Substance: COAGULATION FACTOR IX RECOMBINANT HUMAN
     Indication: Prophylaxis
     Dosage: 1000 INTERNATIONAL UNIT, EVERY 5 DAYS
     Route: 042
     Dates: start: 202211
  4. IDELVION [Suspect]
     Active Substance: COAGULATION FACTOR IX RECOMBINANT HUMAN
     Indication: Prophylaxis
     Dosage: 1000 INTERNATIONAL UNIT, EVERY 5 DAYS
     Route: 042
     Dates: start: 202211
  5. IDELVION [Suspect]
     Active Substance: COAGULATION FACTOR IX RECOMBINANT HUMAN
     Dosage: 2000 INTERNATIONAL UNIT, EVERY 5 DAYS
     Route: 042
     Dates: start: 202211
  6. IDELVION [Suspect]
     Active Substance: COAGULATION FACTOR IX RECOMBINANT HUMAN
     Dosage: 2000 INTERNATIONAL UNIT, EVERY 5 DAYS
     Route: 042
     Dates: start: 202211
  7. IDELVION [Suspect]
     Active Substance: COAGULATION FACTOR IX RECOMBINANT HUMAN
     Dosage: 3500 INTERNATIONAL UNIT, EVERY 5 DAYS
     Route: 042
     Dates: start: 201207
  8. IDELVION [Suspect]
     Active Substance: COAGULATION FACTOR IX RECOMBINANT HUMAN
     Dosage: 3500 INTERNATIONAL UNIT, EVERY 5 DAYS
     Route: 042
     Dates: start: 201207

REACTIONS (5)
  - Epistaxis [Unknown]
  - Blood urine present [Unknown]
  - Haemorrhage [Unknown]
  - Haemorrhage [Unknown]
  - Blood urine present [Unknown]

NARRATIVE: CASE EVENT DATE: 20230627
